FAERS Safety Report 5100653-9 (Version None)
Quarter: 2006Q3

REPORT INFORMATION
  Report Type: 
  Country: None (occurrence: None)
  Receive Date: 20060731
  Receipt Date: 20051118
  Transmission Date: 20061208
  Serious: Yes (Other)
  Sender: FDA-Public Use
  Company Number: 215402

PATIENT
  Age: 74 Year
  Sex: Male

DRUGS (3)
  1. RITUXAN [Suspect]
     Indication: LYMPHOMA
     Dosage: 333 MG/M2
     Dates: start: 20050616
  2. ACETAMINOPHEN [Concomitant]
  3. BENADRYL [Concomitant]

REACTIONS (3)
  - CHILLS [None]
  - TREMOR [None]
  - VOMITING [None]
